FAERS Safety Report 5936047-3 (Version None)
Quarter: 2008Q4

REPORT INFORMATION
  Report Type: 
  Country: None (occurrence: None)
  Receive Date: 20081030
  Receipt Date: 20081022
  Transmission Date: 20090506
  Serious: Yes (Hospitalization, Other)
  Sender: FDA-Public Use
  Company Number: JP-JNJFOC-20081002285

PATIENT
  Age: 31 Year
  Sex: Female

DRUGS (16)
  1. RISPERDAL [Suspect]
     Route: 048
  2. RISPERDAL [Suspect]
     Route: 048
  3. RISPERDAL [Suspect]
     Route: 048
  4. RISPERDAL [Suspect]
     Route: 048
  5. RISPERDAL [Suspect]
     Indication: SCHIZOPHRENIA
     Route: 048
  6. CARBAMAZEPINE [Suspect]
     Route: 048
  7. CARBAMAZEPINE [Suspect]
     Indication: SCHIZOPHRENIA
     Route: 048
  8. ZONEGRAN [Suspect]
     Route: 048
  9. ZONEGRAN [Suspect]
     Indication: SCHIZOPHRENIA
     Route: 048
  10. ACETAZOLAMIDE [Suspect]
     Indication: SCHIZOPHRENIA
     Route: 048
  11. HALOPERIDOL [Suspect]
     Route: 041
  12. HALOPERIDOL [Suspect]
     Indication: SCHIZOPHRENIA
     Route: 041
  13. HALOPERIDOL [Suspect]
     Route: 048
  14. HALOPERIDOL [Suspect]
     Route: 048
  15. HALOPERIDOL [Suspect]
     Route: 048
  16. HALOPERIDOL [Suspect]
     Route: 048

REACTIONS (6)
  - DELUSION [None]
  - HYPOKINESIA [None]
  - METABOLIC ENCEPHALOPATHY [None]
  - SOMATIC HALLUCINATION [None]
  - SOMNOLENCE [None]
  - SPEECH DISORDER [None]
